FAERS Safety Report 5190736-X (Version None)
Quarter: 2006Q4

REPORT INFORMATION
  Report Type: 
  Country: None (occurrence: None)
  Receive Date: 20061215
  Receipt Date: 20061201
  Transmission Date: 20070319
  Serious: Yes (Life-Threatening)
  Sender: FDA-Public Use
  Company Number: DSA_29084_2006

PATIENT
  Age: 56 Year
  Sex: Male

DRUGS (2)
  1. ENALAPRIL MALEATE - HYDROCHLORTHIAZIDE [Suspect]
     Indication: HYPERTENSION
     Dosage: DF Q DAY PO
     Route: 048
     Dates: start: 20060117, end: 20060307
  2. ASPIRIN [Concomitant]

REACTIONS (5)
  - CREATININE URINE INCREASED [None]
  - DRUG INEFFECTIVE [None]
  - HYPERTENSIVE CRISIS [None]
  - PHARMACEUTICAL PRODUCT COMPLAINT [None]
  - RENIN INCREASED [None]
